FAERS Safety Report 9510612 (Version 1)
Quarter: 2013Q3

REPORT INFORMATION
  Report Type: Spontaneous
  Country: US (occurrence: US)
  Receive Date: 20130909
  Receipt Date: 20130909
  Transmission Date: 20140515
  Serious: Yes (Other)
  Sender: FDA-Public Use
  Company Number: US-BAYER-2013-107154

PATIENT
  Age: 31 Year
  Sex: Female
  Weight: 58.96 kg

DRUGS (1)
  1. BAYER ADVANCED ASPIRIN EXTRA STRENGTH [Suspect]
     Indication: MEDIAL TIBIAL STRESS SYNDROME
     Dosage: 1 DF, PRN
     Route: 048
     Dates: end: 20130829

REACTIONS (9)
  - Chemical injury [Recovering/Resolving]
  - Oropharyngeal pain [Recovering/Resolving]
  - Pharyngeal oedema [Recovering/Resolving]
  - Pharyngeal inflammation [Recovering/Resolving]
  - Throat irritation [Recovering/Resolving]
  - Eating disorder [Recovering/Resolving]
  - Speech disorder [Recovering/Resolving]
  - Dysphagia [Recovering/Resolving]
  - Pharyngeal erythema [Recovering/Resolving]
